FAERS Safety Report 5248860-9 (Version None)
Quarter: 2007Q1

REPORT INFORMATION
  Report Type: 
  Country: None (occurrence: None)
  Receive Date: 20070228
  Receipt Date: 20060321
  Transmission Date: 20070707
  Serious: No
  Sender: FDA-Public Use
  Company Number: US-GLAXOSMITHKLINE-A0598451A

PATIENT
  Age: 20 Year
  Sex: Female

DRUGS (4)
  1. VALTREX [Suspect]
     Dosage: 500MG PER DAY
     Route: 048
     Dates: start: 20050801
  2. NORGESTIMATE AND ETHINYL ESTRADIOL [Concomitant]
  3. TYLENOL [Concomitant]
  4. HYDROCORTISONE CREAM [Concomitant]

REACTIONS (4)
  - DRUG INEFFECTIVE [None]
  - GROIN PAIN [None]
  - HERPES SIMPLEX [None]
  - PAIN IN EXTREMITY [None]
